FAERS Safety Report 8275059-4 (Version None)
Quarter: 2012Q2

REPORT INFORMATION
  Report Type: 
  Country: None (occurrence: None)
  Receive Date: 20120411
  Receipt Date: 20120406
  Transmission Date: 20120825
  Serious: Yes (Other)
  Sender: FDA-Public Use
  Company Number: JP-VERTEX PHARMACEUTICALS INC.-AE-2012-004058

PATIENT
  Age: 57 Year
  Sex: Female

DRUGS (11)
  1. NABOAL [Concomitant]
     Route: 048
     Dates: start: 20120123, end: 20120229
  2. REBETOL [Concomitant]
     Indication: HEPATITIS C
     Route: 048
     Dates: start: 20120123, end: 20120215
  3. GASMOTIN [Concomitant]
     Route: 048
  4. INCIVEK [Suspect]
     Indication: HEPATITIS C
     Route: 048
     Dates: start: 20120123, end: 20120125
  5. INCIVEK [Suspect]
     Route: 048
     Dates: start: 20120201, end: 20120323
  6. URSO 250 [Concomitant]
  7. REBETOL [Concomitant]
     Route: 048
     Dates: start: 20120216, end: 20120330
  8. LANSOPRAZOLE [Concomitant]
     Route: 048
     Dates: start: 20120126
  9. PEG-INTRON [Concomitant]
     Indication: HEPATITIS C
     Route: 051
     Dates: start: 20120123, end: 20120330
  10. FAMOTIDINE [Concomitant]
     Route: 048
     Dates: end: 20120126
  11. VOLTAREN [Concomitant]
     Route: 048
     Dates: start: 20120302

REACTIONS (2)
  - MATERNAL EXPOSURE DURING PREGNANCY [None]
  - DEPRESSIVE SYMPTOM [None]
